FAERS Safety Report 4444004-1 (Version None)
Quarter: 2004Q3

REPORT INFORMATION
  Report Type: 
  Country: None (occurrence: None)
  Receive Date: 20040729
  Receipt Date: 20031020
  Transmission Date: 20050211
  Serious: Yes (Hospitalization)
  Sender: FDA-Public Use
  Company Number: US-JNJFOC-20031004572

PATIENT
  Age: 57 Year
  Sex: Female

DRUGS (1)
  1. RISPERDAL [Suspect]
     Dosage: 1 MG, 1 IN 1 DAY, ORAL
     Route: 048

REACTIONS (2)
  - PSYCHOTIC DISORDER [None]
  - SOMNOLENCE [None]
